FAERS Safety Report 21829178 (Version 2)
Quarter: 2023Q1

REPORT INFORMATION
  Report Type: Report from Study
  Country: JP (occurrence: JP)
  Receive Date: 20230106
  Receipt Date: 20230109
  Transmission Date: 20230417
  Serious: Yes (Other)
  Sender: FDA-Public Use
  Company Number: JP-SERVIER-S22012835

PATIENT
  Age: 66 Year
  Sex: Male
  Weight: 63 kg

DRUGS (2)
  1. IVABRADINE [Suspect]
     Active Substance: IVABRADINE
     Indication: Cardiac failure chronic
     Dosage: 5 MILLIGRAM, QD
     Route: 048
     Dates: start: 20191122
  2. IVABRADINE [Suspect]
     Active Substance: IVABRADINE
     Dosage: 10 MILLIGRAM, QD
     Route: 048
     Dates: start: 20200524, end: 20200807

REACTIONS (1)
  - Cardiac failure [Recovered/Resolved]

NARRATIVE: CASE EVENT DATE: 20200807
